FAERS Safety Report 5754356-8 (Version None)
Quarter: 2008Q2

REPORT INFORMATION
  Report Type: 
  Country: None (occurrence: None)
  Receive Date: 20080530
  Receipt Date: 20080522
  Transmission Date: 20081010
  Serious: Yes (Congenital Anomaly)
  Sender: FDA-Public Use
  Company Number: DK-PFIZER INC-2008024787

PATIENT
  Sex: Female

DRUGS (5)
  1. ZOLOFT [Suspect]
     Indication: DEPRESSION
     Dosage: DAILY DOSE:100MG-FREQ:DAILY
     Route: 048
     Dates: start: 20070710, end: 20080205
  2. SELO-ZOK [Suspect]
     Indication: ARRHYTHMIA
     Dosage: DAILY DOSE:50MG
     Route: 048
  3. SEROQUEL [Suspect]
     Indication: DEPRESSION
     Dosage: DAILY DOSE:700MG
     Route: 048
     Dates: start: 20040101, end: 20070710
  4. EFFEXOR [Suspect]
     Indication: DEPRESSION
     Dosage: DAILY DOSE:300MG
     Route: 048
     Dates: start: 20040101, end: 20070710
  5. LAMICTAL [Suspect]
     Indication: DEPRESSION
     Dosage: DAILY DOSE:150MG
     Route: 048
     Dates: start: 20040101, end: 20070710

REACTIONS (1)
  - CEREBRAL VENTRICLE DILATATION [None]
